FAERS Safety Report 8848773 (Version 24)
Quarter: 2014Q2

REPORT INFORMATION
  Report Type: Report from Study
  Country: US (occurrence: US)
  Receive Date: 20121018
  Receipt Date: 20140508
  Transmission Date: 20141212
  Serious: Yes (Hospitalization, Other)
  Sender: FDA-Public Use
  Company Number: US-ROCHE-1108907

PATIENT
  Age: 46 Year
  Sex: Female
  Weight: 85 kg

DRUGS (10)
  1. PEG-INTERFERON ALFA 2A [Suspect]
     Indication: CHRONIC HEPATITIS C
     Dosage: DATE OF MOST RECENT DOSE PRIOR TO SAE: 06/OCT/2012 AND //2012
     Route: 058
     Dates: start: 20120519
  2. RIBAVIRIN [Suspect]
     Indication: CHRONIC HEPATITIS C
     Dosage: DATE OF MOST RECENT DOSE PRIOR TO SAE: 06/OCT/2012 AND ON //2012.
     Route: 065
     Dates: start: 20120519
  3. RIBAVIRIN [Suspect]
     Dosage: DATE OF MOST RECENT DOSE PRIOR TO SAE: 15/SEP/2012
     Route: 065
     Dates: start: 20120519
  4. TELAPREVIR [Suspect]
     Indication: CHRONIC HEPATITIS C
     Dosage: DATE OF MOST RECENT DOSE PRIOR TO SAE:01/AUG/2012
     Route: 065
     Dates: start: 20120518
  5. MILRINONE [Concomitant]
  6. ACETAMINOPHEN [Concomitant]
  7. ALBUMIN HUMAN 5% [Concomitant]
     Route: 042
  8. AMIODARONE [Concomitant]
  9. NOREPINEPHRINE [Concomitant]
  10. OXYCODON [Concomitant]

REACTIONS (16)
  - Mitral valve stenosis [Recovered/Resolved]
  - Asthenia [Recovered/Resolved]
  - Syncope [Recovered/Resolved]
  - Mitral valve calcification [Recovered/Resolved]
  - Non-cardiac chest pain [Recovered/Resolved with Sequelae]
  - Anticoagulation drug level below therapeutic [Not Recovered/Not Resolved]
  - Atrial fibrillation [Recovered/Resolved with Sequelae]
  - Hyperkalaemia [Recovered/Resolved with Sequelae]
  - Arteriovenous fistula site complication [Recovered/Resolved]
  - Atrial flutter [Unknown]
  - Aortic valve stenosis [Recovered/Resolved]
  - Catheter site pain [Recovered/Resolved]
  - Periodontal disease [Recovered/Resolved]
  - Arteriovenous fistula site complication [Recovered/Resolved]
  - Arteriovenous fistula aneurysm [Recovered/Resolved with Sequelae]
  - Anticoagulation drug level below therapeutic [Recovered/Resolved]
